FAERS Safety Report 25332572 (Version 1)
Quarter: 2025Q2

REPORT INFORMATION
  Report Type: Spontaneous
  Country: US (occurrence: US)
  Receive Date: 20250519
  Receipt Date: 20250519
  Transmission Date: 20250717
  Serious: Yes (Death, Other)
  Sender: MALLINCKRODT
  Company Number: US-MALLINCKRODT-MNK202502844

PATIENT
  Age: 47 Year
  Sex: Male

DRUGS (3)
  1. NITRIC OXIDE [Suspect]
     Active Substance: NITRIC OXIDE
     Indication: Product used for unknown indication
     Route: 055
  2. TREPROSTINIL [Concomitant]
     Active Substance: TREPROSTINIL
     Route: 042
  3. SILDENAFIL [Concomitant]
     Active Substance: SILDENAFIL
     Route: 048

REACTIONS (7)
  - Gastrointestinal cancer metastatic [Fatal]
  - Pulmonary hypertension [Fatal]
  - Cardiac arrest [Unknown]
  - Gastrointestinal haemorrhage [Unknown]
  - Abdominal lymphadenopathy [Unknown]
  - Lymphadenopathy [Unknown]
  - Product use issue [Unknown]
